FAERS Safety Report 8070711-8 (Version None)
Quarter: 2012Q1

REPORT INFORMATION
  Report Type: 
  Country: None (occurrence: None)
  Receive Date: 20120125
  Receipt Date: 20120123
  Transmission Date: 20120608
  Serious: Yes (Other)
  Sender: FDA-Public Use
  Company Number: PHHY2011AU111110

PATIENT
  Sex: Male
  Weight: 69 kg

DRUGS (1)
  1. EXJADE [Suspect]
     Indication: IRON OVERLOAD
     Dosage: 1375 MG, DAILY
     Route: 048
     Dates: start: 20100715, end: 20101201

REACTIONS (2)
  - NEPHROLITHIASIS [None]
  - RENAL COLIC [None]
